FAERS Safety Report 4822036-9 (Version None)
Quarter: 2005Q4

REPORT INFORMATION
  Report Type: 
  Country: None (occurrence: None)
  Receive Date: 20051107
  Receipt Date: 20051028
  Transmission Date: 20060501
  Serious: Yes (Hospitalization, Other)
  Sender: FDA-Public Use
  Company Number: US-JNJFOC-20051006188

PATIENT
  Sex: Female
  Weight: 46.72 kg

DRUGS (4)
  1. ORTHO TRI-CYCLEN LO [Suspect]
     Indication: CONTRACEPTION
     Route: 048
     Dates: start: 20051002
  2. EXTRA STRENGTH TYLENOL [Suspect]
     Indication: SLEEP DISORDER THERAPY
     Route: 048
     Dates: start: 20051019
  3. EXTRA STRENGTH TYLENOL [Suspect]
     Route: 048
     Dates: start: 20051019
  4. ALBUTEROL [Concomitant]
     Indication: ASTHMA

REACTIONS (3)
  - DEPRESSION [None]
  - EMOTIONAL DISORDER [None]
  - INTENTIONAL OVERDOSE [None]
